FAERS Safety Report 19002247 (Version 3)
Quarter: 2021Q3

REPORT INFORMATION
  Report Type: Spontaneous
  Country: FR (occurrence: FR)
  Receive Date: 20210312
  Receipt Date: 20210811
  Transmission Date: 20211014
  Serious: Yes (Hospitalization)
  Sender: FDA-Public Use
  Company Number: FR-ABBVIE-21K-056-3805653-00

PATIENT
  Age: 76 Year
  Sex: Male

DRUGS (43)
  1. SUCROSE [Concomitant]
     Active Substance: SUCROSE
     Indication: DECREASED APPETITE
     Route: 065
     Dates: start: 20210121
  2. PARAFFIN [Concomitant]
     Active Substance: PARAFFIN
     Indication: DECREASED APPETITE
     Dates: start: 20210121
  3. THIAMINE HYDROCHLORIDE. [Concomitant]
     Active Substance: THIAMINE HYDROCHLORIDE
     Indication: DECREASED APPETITE
  4. PEVONEDISTAT [Suspect]
     Active Substance: PEVONEDISTAT
     Indication: ACUTE MYELOID LEUKAEMIA
     Route: 065
     Dates: start: 20210126, end: 2021
  5. MINERALS NOS [Concomitant]
     Active Substance: MINERALS
     Indication: DECREASED APPETITE
     Route: 065
     Dates: start: 20210121
  6. TAZOCILLINE [Concomitant]
     Active Substance: PIPERACILLIN SODIUM\TAZOBACTAM SODIUM
     Indication: PYREXIA
     Route: 065
     Dates: start: 20210118, end: 20210128
  7. DIFFU K [Concomitant]
     Active Substance: POTASSIUM CHLORIDE
     Indication: PROPHYLAXIS
     Route: 065
     Dates: start: 20210121, end: 20210128
  8. FERROUS FUMARATE [Concomitant]
     Active Substance: FERROUS FUMARATE
     Indication: DECREASED APPETITE
  9. LIDOCAINE HYDROCHLORIDE. [Concomitant]
     Active Substance: LIDOCAINE HYDROCHLORIDE
     Indication: LYMPHADENOPATHY
     Route: 065
     Dates: start: 20210130, end: 20210131
  10. MAGNESIUM SULFATE. [Concomitant]
     Active Substance: MAGNESIUM SULFATE
     Indication: LYMPHADENOPATHY
     Route: 065
     Dates: start: 20210130, end: 20210131
  11. POSACONAZOLE [Concomitant]
     Active Substance: POSACONAZOLE
     Indication: INFECTION PROPHYLAXIS
     Route: 065
     Dates: start: 20210119
  12. ASCORBIC ACID. [Concomitant]
     Active Substance: ASCORBIC ACID
     Indication: DECREASED APPETITE
     Route: 065
     Dates: start: 20210121
  13. LOSARTAN. [Concomitant]
     Active Substance: LOSARTAN
     Indication: HYPERTENSION
     Route: 065
  14. CALCIUM PANTOTHENATE [Concomitant]
     Active Substance: CALCIUM PANTOTHENATE
     Indication: DECREASED APPETITE
     Route: 065
  15. CALCIUM PHOSPHATE [Concomitant]
     Active Substance: CALCIUM PHOSPHATE
     Indication: DECREASED APPETITE
  16. MAGNESIUM PHOSPHATE [Concomitant]
     Active Substance: MAGNESIUM PHOSPHATE, TRIBASIC, PENTAHYDRATE
     Indication: DECREASED APPETITE
  17. PEVONEDISTAT [Suspect]
     Active Substance: PEVONEDISTAT
     Route: 065
     Dates: start: 20210128
  18. AZACITIDINE. [Suspect]
     Active Substance: AZACITIDINE
     Indication: ACUTE MYELOID LEUKAEMIA
     Route: 058
     Dates: start: 20210126, end: 2021
  19. AZACITIDINE. [Suspect]
     Active Substance: AZACITIDINE
     Route: 058
     Dates: start: 20210201
  20. WHEY PROTEIN [Concomitant]
     Active Substance: WHEY
     Indication: DECREASED APPETITE
     Route: 065
     Dates: start: 20210121
  21. ERGOCALCIFEROL. [Concomitant]
     Active Substance: ERGOCALCIFEROL
     Indication: DECREASED APPETITE
     Route: 062
  22. LINEZOLIDE [Concomitant]
     Active Substance: LINEZOLID
     Indication: PYREXIA
     Route: 065
     Dates: start: 20210120, end: 20210128
  23. CALCIUM GLUCONATE. [Concomitant]
     Active Substance: CALCIUM GLUCONATE
     Indication: DECREASED APPETITE
  24. RETINOL [Concomitant]
     Active Substance: RETINOL
     Indication: DECREASED APPETITE
  25. TOCOPHEROL [Concomitant]
     Active Substance: TOCOPHEROL
     Indication: DECREASED APPETITE
  26. TAZOBACTAM SODIUM [Concomitant]
     Active Substance: TAZOBACTAM SODIUM
     Indication: PYREXIA
     Route: 065
  27. SODIUM CHLORIDE. [Concomitant]
     Active Substance: SODIUM CHLORIDE
     Indication: NODULE
     Route: 065
     Dates: start: 20210130, end: 20210131
  28. ALLOPURINOL. [Concomitant]
     Active Substance: ALLOPURINOL
     Indication: PROPHYLAXIS
     Route: 065
     Dates: start: 20210126, end: 20210128
  29. PIPERACILLIN SODIUM [Concomitant]
     Active Substance: PIPERACILLIN SODIUM
     Indication: PYREXIA
     Route: 065
  30. VENETOCLAX. [Suspect]
     Active Substance: VENETOCLAX
     Route: 048
     Dates: start: 20210127, end: 202101
  31. VENETOCLAX. [Suspect]
     Active Substance: VENETOCLAX
     Route: 048
     Dates: start: 20210128
  32. CHLORHEXIDINE [Concomitant]
     Active Substance: CHLORHEXIDINE
     Indication: APICAL GRANULOMA
     Route: 065
     Dates: start: 20210124, end: 20210131
  33. GLUCOSE [Concomitant]
     Active Substance: DEXTROSE
     Indication: DECREASED APPETITE
     Route: 065
     Dates: start: 20210121
  34. NICOTINAMIDE [Concomitant]
     Active Substance: NIACINAMIDE
     Indication: DECREASED APPETITE
  35. PYRIDOXINE HYDROCHLORIDE. [Concomitant]
     Active Substance: PYRIDOXINE HYDROCHLORIDE
     Indication: DECREASED APPETITE
  36. RIBOFLAVIN [Concomitant]
     Active Substance: RIBOFLAVIN
     Indication: DECREASED APPETITE
  37. VENETOCLAX. [Suspect]
     Active Substance: VENETOCLAX
     Indication: ACUTE MYELOID LEUKAEMIA
     Route: 048
     Dates: start: 20210126, end: 202101
  38. VENETOCLAX. [Suspect]
     Active Substance: VENETOCLAX
     Route: 048
     Dates: start: 20210128, end: 20210128
  39. PHLOROGLUCINOL [Concomitant]
     Active Substance: PHLOROGLUCINOL
     Indication: DIARRHOEA
     Route: 065
     Dates: start: 20210202, end: 20210202
  40. HERBAL NOS [Concomitant]
     Active Substance: HERBALS
     Indication: DECREASED APPETITE
     Route: 065
     Dates: start: 20210121
  41. CYANOCOBALAMIN. [Concomitant]
     Active Substance: CYANOCOBALAMIN
     Indication: DECREASED APPETITE
  42. FOLIC ACID. [Concomitant]
     Active Substance: FOLIC ACID
     Indication: DECREASED APPETITE
  43. VITAMINS NOS [Concomitant]
     Active Substance: VITAMINS
     Indication: PRODUCT USED FOR UNKNOWN INDICATION
     Route: 065

REACTIONS (1)
  - Leukopenia [Recovered/Resolved]

NARRATIVE: CASE EVENT DATE: 20210222
